FAERS Safety Report 5903971-7 (Version None)
Quarter: 2008Q3

REPORT INFORMATION
  Report Type: 
  Country: None (occurrence: None)
  Receive Date: 20080919
  Receipt Date: 20080707
  Transmission Date: 20090109
  Serious: No
  Sender: FDA-Public Use
  Company Number: US-WYE-H04941708

PATIENT
  Age: 56 Year
  Sex: Female
  Weight: 67.19 kg

DRUGS (8)
  1. PRISTIQ [Suspect]
     Indication: DEPRESSION
     Dosage: 50 MG 1X PER 1 DAY, ORAL
     Route: 048
     Dates: start: 20080704, end: 20080715
  2. SYNTHROID [Concomitant]
  3. NORVASC [Concomitant]
  4. XANAX [Concomitant]
  5. ACETYLSALICYLIC ACID SRT [Concomitant]
  6. CITRACAL (CALCIUM CITRATE) [Concomitant]
  7. FISH OIL, HYDROGENATED (FISH OIL, HYDROGENATED) [Concomitant]
  8. TOFRANIL [Concomitant]

REACTIONS (11)
  - ANOREXIA [None]
  - ASTHENIA [None]
  - DRY MOUTH [None]
  - DRY THROAT [None]
  - DYSPHAGIA [None]
  - HYPERSENSITIVITY [None]
  - HYPOAESTHESIA ORAL [None]
  - PRURITUS [None]
  - RASH ERYTHEMATOUS [None]
  - SOMNOLENCE [None]
  - WEIGHT DECREASED [None]
